FAERS Safety Report 7290997-7 (Version None)
Quarter: 2011Q1

REPORT INFORMATION
  Report Type: 
  Country: None (occurrence: None)
  Receive Date: 20110214
  Receipt Date: 20110208
  Transmission Date: 20110831
  Serious: Yes (Death, Hospitalization)
  Sender: FDA-Public Use
  Company Number: US-BRACCO-005615

PATIENT
  Age: 26 Year
  Sex: Male

DRUGS (3)
  1. ISOVUE-128 [Suspect]
     Indication: METASTASIS
     Route: 042
     Dates: start: 20101123, end: 20101123
  2. ISOVUE-128 [Suspect]
     Indication: ANGIOGRAM
     Route: 042
     Dates: start: 20101123, end: 20101123
  3. ISOVUE-128 [Suspect]
     Indication: TESTIS CANCER
     Route: 042
     Dates: start: 20101123, end: 20101123

REACTIONS (2)
  - ANAPHYLACTIC SHOCK [None]
  - MULTI-ORGAN FAILURE [None]
